FAERS Safety Report 19317390 (Version 2)
Quarter: 2021Q4

REPORT INFORMATION
  Report Type: Spontaneous
  Country: US (occurrence: US)
  Receive Date: 20210528
  Receipt Date: 20211227
  Transmission Date: 20220303
  Serious: Yes (Other)
  Sender: FDA-Public Use
  Company Number: US-PURDUE-USA-2020-0184352

PATIENT
  Sex: Female

DRUGS (1)
  1. OXYCONTIN [Suspect]
     Active Substance: OXYCODONE HYDROCHLORIDE
     Indication: Breast cancer
     Dosage: UNK
     Route: 048

REACTIONS (9)
  - Drug dependence [Unknown]
  - Hallucination [Unknown]
  - Delusion [Unknown]
  - Anxiety [Unknown]
  - Amnesia [Unknown]
  - Weight increased [Unknown]
  - Emotional distress [Unknown]
  - Anxiety [Unknown]
  - Aggression [Unknown]
